FAERS Safety Report 9312269 (Version 1)
Quarter: 2013Q1

REPORT INFORMATION
  Report Type: Spontaneous
  Country: US (occurrence: None)
  Receive Date: 20130212
  Receipt Date: 20130212
  Transmission Date: 20140127
  Serious: Yes (Hospitalization, Other)
  Sender: FDA-Public Use
  Company Number: AUR-APL-2009-00152

PATIENT
  Age: 12 Year
  Sex: Male
  Weight: 43 kg

DRUGS (1)
  1. CEFTRIAXONE (CEFTRIAXONE) [Suspect]
     Indication: TONSILLITIS

REACTIONS (2)
  - Drug-induced liver injury [None]
  - Hyperglycaemia [None]
